FAERS Safety Report 21982993 (Version 2)
Quarter: 2023Q1

REPORT INFORMATION
  Report Type: Other
  Country: US (occurrence: None)
  Receive Date: 20230213
  Receipt Date: 20230214
  Transmission Date: 20230418
  Serious: No
  Sender: FDA-Public Use
  Company Number: US-ROCHE-3284673

PATIENT
  Age: 58 Year
  Sex: Female
  Weight: 79.450 kg

DRUGS (2)
  1. OCREVUS [Suspect]
     Active Substance: OCRELIZUMAB
     Indication: Primary progressive multiple sclerosis
     Dosage: DATE OF TREATMENT: 27/JUL/2021, 10/AUG/2021, 18/JAN/2022, 18/JUL/2022
     Route: 042
     Dates: start: 2021
  2. COPAXONE [Concomitant]
     Active Substance: GLATIRAMER ACETATE

REACTIONS (1)
  - COVID-19 [Recovered/Resolved]

NARRATIVE: CASE EVENT DATE: 20230105
